FAERS Safety Report 24058230 (Version 2)
Quarter: 2024Q3

REPORT INFORMATION
  Report Type: Report from Study
  Country: US (occurrence: US)
  Receive Date: 20240708
  Receipt Date: 20240711
  Transmission Date: 20241017
  Serious: Yes (Hospitalization, Other)
  Sender: ABBVIE
  Company Number: US-ABBVIE-5828500

PATIENT
  Sex: Female

DRUGS (1)
  1. SKYRIZI [Suspect]
     Active Substance: RISANKIZUMAB-RZAA
     Indication: Psoriasis
     Route: 058
     Dates: start: 20240422

REACTIONS (7)
  - Eye infection [Recovering/Resolving]
  - Lens extraction [Unknown]
  - Facial pain [Unknown]
  - Swelling face [Unknown]
  - Erythema [Unknown]
  - Dry eye [Unknown]
  - Procedural pain [Unknown]

NARRATIVE: CASE EVENT DATE: 20240101
